FAERS Safety Report 19009530 (Version 3)
Quarter: 2021Q2

REPORT INFORMATION
  Report Type: Report from Study
  Country: US (occurrence: US)
  Receive Date: 20210315
  Receipt Date: 20210415
  Transmission Date: 20210717
  Serious: No
  Sender: FDA-Public Use
  Company Number: US-KYOWAKIRIN-2021BKK003687

PATIENT

DRUGS (4)
  1. POTELIGEO [Suspect]
     Active Substance: MOGAMULIZUMAB-KPKC
     Indication: CUTANEOUS T-CELL LYMPHOMA
     Dosage: UNK, INITIALLY EVERY WEEK FOR 4 WEEKS THEN EVERY OTHER WEEK
     Route: 042
     Dates: start: 201812
  2. POTELIGEO [Suspect]
     Active Substance: MOGAMULIZUMAB-KPKC
     Dosage: 100 MG, 1X/2 WEEKS
     Route: 042
     Dates: end: 20201030
  3. POTELIGEO [Suspect]
     Active Substance: MOGAMULIZUMAB-KPKC
     Dosage: UNK, INITIALLY EVERY WEEK FOR 4 WEEKS THEN EVERY OTHER WEEK
     Route: 042
     Dates: start: 201901
  4. POTELIGEO [Suspect]
     Active Substance: MOGAMULIZUMAB-KPKC
     Dosage: 92 MG, EVERY OTHER WEEK
     Route: 042
     Dates: start: 20201113

REACTIONS (2)
  - Skin plaque [Not Recovered/Not Resolved]
  - Inappropriate schedule of product administration [Recovered/Resolved]
